FAERS Safety Report 6835252-1 (Version None)
Quarter: 2010Q3

REPORT INFORMATION
  Report Type: 
  Country: None (occurrence: None)
  Receive Date: 20100713
  Receipt Date: 20100623
  Transmission Date: 20110219
  Serious: Yes (Life-Threatening, Other)
  Sender: FDA-Public Use
  Company Number: AT-BAYER-201026581GPV

PATIENT
  Age: 56 Year
  Sex: Male

DRUGS (16)
  1. MABCAMPATH [Suspect]
     Indication: T-CELL PROLYMPHOCYTIC LEUKAEMIA
     Dosage: UNIT DOSE: 10 MG/ML
     Route: 058
     Dates: start: 20091015, end: 20091017
  2. MABCAMPATH [Suspect]
     Dosage: UNIT DOSE: 10 MG/ML
     Route: 058
     Dates: start: 20091113, end: 20091115
  3. MABCAMPATH [Suspect]
     Dosage: UNIT DOSE: 10 MG/ML
     Route: 058
     Dates: start: 20100108, end: 20100110
  4. MABCAMPATH [Suspect]
     Dosage: UNIT DOSE: 10 MG/ML
     Route: 058
     Dates: start: 20091211, end: 20091213
  5. NEOFLUBIN [Suspect]
     Indication: T-CELL PROLYMPHOCYTIC LEUKAEMIA
     Dosage: UNIT DOSE: 25 MG/ML
     Route: 042
     Dates: start: 20091113, end: 20091115
  6. NEOFLUBIN [Suspect]
     Dosage: UNIT DOSE: 25 MG/ML
     Route: 042
     Dates: start: 20100108, end: 20100110
  7. NEOFLUBIN [Suspect]
     Dosage: UNIT DOSE: 25 MG/ML
     Route: 042
     Dates: start: 20091211, end: 20091213
  8. NEOFLUBIN [Suspect]
     Dosage: UNIT DOSE: 25 MG/ML
     Route: 042
     Dates: start: 20091015, end: 20091017
  9. EBEXANTRON [Suspect]
     Indication: T-CELL PROLYMPHOCYTIC LEUKAEMIA
     Dosage: UNIT DOSE: 2 MG/ML
     Route: 042
     Dates: start: 20091113, end: 20091113
  10. EBEXANTRON [Suspect]
     Dosage: UNIT DOSE: 2 MG/ML
     Route: 042
     Dates: start: 20091112, end: 20091112
  11. EBEXANTRON [Suspect]
     Dosage: UNIT DOSE: 2 MG/ML
     Route: 042
     Dates: start: 20100108, end: 20100108
  12. EBEXANTRON [Suspect]
     Dosage: UNIT DOSE: 2 MG/ML
     Route: 042
     Dates: start: 20091015, end: 20091015
  13. ENDOXAN ^BAXTER^ [Suspect]
     Indication: T-CELL PROLYMPHOCYTIC LEUKAEMIA
     Route: 042
     Dates: start: 20091015, end: 20091017
  14. ENDOXAN ^BAXTER^ [Suspect]
     Route: 042
     Dates: start: 20091113, end: 20091115
  15. ENDOXAN ^BAXTER^ [Suspect]
     Route: 042
     Dates: start: 20091211, end: 20091213
  16. ENDOXAN ^BAXTER^ [Suspect]
     Route: 042
     Dates: start: 20100108, end: 20100110

REACTIONS (2)
  - CAMPYLOBACTER INFECTION [None]
  - GUILLAIN-BARRE SYNDROME [None]
